FAERS Safety Report 8779385 (Version 2)
Quarter: 2012Q4

REPORT INFORMATION
  Report Type: Report from Study
  Country: DE (occurrence: DE)
  Receive Date: 20120912
  Receipt Date: 20120924
  Transmission Date: 20130627
  Serious: Yes (Death)
  Sender: FDA-Public Use
  Company Number: DE-ASTELLAS-2012EU006636

PATIENT
  Age: 47 Year
  Sex: Female
  Weight: 43 kg

DRUGS (4)
  1. MICAFUNGIN INJECTION [Suspect]
     Indication: PROPHYLAXIS
     Dosage: 50 mg, UID/QD
     Route: 042
     Dates: start: 20120315
  2. PANTOZOL [Concomitant]
     Dosage: UNK
     Route: 065
     Dates: start: 20120229
  3. TAMOXIFEN [Concomitant]
     Dosage: UNK
     Route: 065
     Dates: start: 20120229
  4. URSOFALK [Concomitant]
     Dosage: UNK
     Route: 065
     Dates: start: 20120229

REACTIONS (2)
  - Acute graft versus host disease [Fatal]
  - Multi-organ failure [Fatal]
